FAERS Safety Report 9925497 (Version 1)
Quarter: 2014Q1

REPORT INFORMATION
  Report Type: Spontaneous
  Country: US (occurrence: None)
  Receive Date: 20140224
  Receipt Date: 20140224
  Transmission Date: 20141002
  Serious: Yes (Death)
  Sender: FDA-Public Use
  Company Number: NL01PV14.35158

PATIENT
  Age: 43 Year
  Sex: Female

DRUGS (6)
  1. UNKNOWN (ZOLPIDEM) TABLET [Suspect]
     Route: 048
  2. OXYCODONE (OXYCODONE) [Suspect]
     Route: 048
  3. ALPRAZOLAM (ALPRAZOLAM) [Suspect]
     Route: 048
  4. TRAZODONE (TRAZODONE) [Suspect]
     Route: 048
  5. ACETAMINOPHEN (PARACETAMOL) [Suspect]
     Route: 048
  6. MUSCLE RELAXANTS [Suspect]
     Route: 048

REACTIONS (2)
  - Drug abuse [None]
  - Exposure via ingestion [None]
